FAERS Safety Report 8425174-7 (Version None)
Quarter: 2012Q2

REPORT INFORMATION
  Report Type: 
  Country: None (occurrence: None)
  Receive Date: 20120611
  Receipt Date: 20120601
  Transmission Date: 20120825
  Serious: Yes (Other)
  Sender: FDA-Public Use
  Company Number: US-US-EMD SERONO, INC.-7026611

PATIENT
  Sex: Female

DRUGS (1)
  1. REBIF [Suspect]
     Indication: MULTIPLE SCLEROSIS
     Route: 058
     Dates: start: 20080417, end: 20090501

REACTIONS (4)
  - GALLBLADDER DISORDER [None]
  - PROCEDURAL COMPLICATION [None]
  - MEMORY IMPAIRMENT [None]
  - GASTRIC ULCER [None]
